FAERS Safety Report 6148575-9 (Version None)
Quarter: 2009Q2

REPORT INFORMATION
  Report Type: 
  Country: None (occurrence: None)
  Receive Date: 20090406
  Receipt Date: 20090406
  Transmission Date: 20091009
  Serious: No
  Sender: FDA-Public Use
  Company Number: None

PATIENT
  Age: 49 Year
  Sex: Female
  Weight: 83.4619 kg

DRUGS (2)
  1. ALPRAZOLAM [Suspect]
     Indication: ANXIETY DISORDER
     Dosage: 1MG 2X DAILY PO
     Route: 048
     Dates: start: 20090403, end: 20090404
  2. ALPRAZOLAM [Suspect]
     Indication: PANIC REACTION
     Dosage: 1MG 2X DAILY PO
     Route: 048
     Dates: start: 20090403, end: 20090404

REACTIONS (2)
  - DRUG INEFFECTIVE [None]
  - PRODUCT QUALITY ISSUE [None]
